FAERS Safety Report 25728395 (Version 2)
Quarter: 2025Q3

REPORT INFORMATION
  Report Type: Spontaneous
  Country: IN (occurrence: IN)
  Receive Date: 20250826
  Receipt Date: 20250912
  Transmission Date: 20251020
  Serious: Yes (Death, Hospitalization)
  Sender: ABBVIE
  Company Number: IN-ABBVIE-6434093

PATIENT
  Age: 60 Year
  Sex: Female

DRUGS (4)
  1. VENCLEXTA [Suspect]
     Active Substance: VENETOCLAX
     Indication: Acute myeloid leukaemia
     Dosage: FORM STRENGTH:100 MILLIGRAM
     Route: 048
     Dates: start: 20240415, end: 20250702
  2. CYTARABINE [Suspect]
     Active Substance: CYTARABINE
     Indication: Acute myeloid leukaemia
     Route: 065
     Dates: start: 202505
  3. DAUNORUBICIN [Concomitant]
     Active Substance: DAUNORUBICIN
     Indication: Product used for unknown indication
  4. AZACITIDINE [Suspect]
     Active Substance: AZACITIDINE
     Indication: Product used for unknown indication
     Route: 065
     Dates: start: 20240415

REACTIONS (7)
  - Oxygen saturation decreased [Fatal]
  - Blood pressure fluctuation [Fatal]
  - Pneumonia [Fatal]
  - Thrombocytopenia [Unknown]
  - Swelling [Unknown]
  - Hyperleukocytosis [Unknown]
  - Anaemia [Unknown]

NARRATIVE: CASE EVENT DATE: 20250501
